FAERS Safety Report 14508486 (Version 5)
Quarter: 2018Q3

REPORT INFORMATION
  Report Type: Report from Study
  Country: FR (occurrence: FR)
  Receive Date: 20180209
  Receipt Date: 20180920
  Transmission Date: 20181010
  Serious: Yes (Death, Hospitalization, Other)
  Sender: FDA-Public Use
  Company Number: FR-BRISTOL-MYERS SQUIBB COMPANY-BMS-2017-101613

PATIENT
  Age: 75 Year
  Sex: Male

DRUGS (9)
  1. PERINDOPRIL [Concomitant]
     Active Substance: PERINDOPRIL
     Indication: PRODUCT USED FOR UNKNOWN INDICATION
     Dosage: UNK MG, UNK
     Route: 065
  2. NEBIVOLOL. [Concomitant]
     Active Substance: NEBIVOLOL
     Indication: PRODUCT USED FOR UNKNOWN INDICATION
     Dosage: UNK UNK, QD; 1/2?0?0
     Route: 065
  3. ASPIRIN                            /00002701/ [Concomitant]
     Active Substance: ASPIRIN
     Indication: PRODUCT USED FOR UNKNOWN INDICATION
     Dosage: 1?0?0
     Route: 065
  4. LANZOPRAZOL [Concomitant]
     Active Substance: LANSOPRAZOLE
     Indication: PRODUCT USED FOR UNKNOWN INDICATION
     Dosage: 1?0?0
     Route: 065
  5. CRESTOR [Concomitant]
     Active Substance: ROSUVASTATIN CALCIUM
     Indication: PRODUCT USED FOR UNKNOWN INDICATION
     Route: 065
  6. ASPIRINE PROTECT [Concomitant]
     Active Substance: ASPIRIN
     Indication: PRODUCT USED FOR UNKNOWN INDICATION
     Route: 065
  7. VORICONAZOL [Concomitant]
     Active Substance: VORICONAZOLE
     Indication: PRODUCT USED FOR UNKNOWN INDICATION
     Dosage: 1?0?0
     Route: 065
  8. NIVOLUMAB [Suspect]
     Active Substance: NIVOLUMAB
     Indication: LUNG NEOPLASM MALIGNANT
     Dosage: 230 MG, Q2WK
     Route: 042
     Dates: start: 20170905, end: 20171110
  9. PREDNISOLONE. [Concomitant]
     Active Substance: PREDNISOLONE
     Indication: PRODUCT USED FOR UNKNOWN INDICATION
     Dosage: 60 MG PER DAY FOR 3 DAYS, CONTINUOUSLY 20 MG PER DAY
     Route: 065

REACTIONS (33)
  - Haemoglobinaemia [Unknown]
  - Anxiety [Unknown]
  - Malignant neoplasm progression [Fatal]
  - Tumour associated fever [Unknown]
  - Staphylococcal infection [Unknown]
  - Diarrhoea [Recovered/Resolved]
  - Decreased appetite [Unknown]
  - Increased bronchial secretion [Unknown]
  - Klebsiella sepsis [Fatal]
  - Vomiting [Unknown]
  - Pain [Unknown]
  - Confusional state [Unknown]
  - Device related infection [Unknown]
  - Weight decreased [Unknown]
  - Somnolence [Unknown]
  - Thrombophlebitis [Unknown]
  - Lung abscess [Fatal]
  - Atypical mycobacterial infection [Unknown]
  - Dysphagia [Unknown]
  - Spinal fracture [Unknown]
  - General physical health deterioration [Unknown]
  - Candida infection [Unknown]
  - Cough [Unknown]
  - Pain in extremity [Unknown]
  - Blood creatinine increased [Unknown]
  - Nausea [Unknown]
  - Cystitis [Unknown]
  - Escherichia sepsis [Fatal]
  - Aspergillus infection [Unknown]
  - Pneumonia aspiration [Unknown]
  - Apnoea [Unknown]
  - Bacterial infection [Unknown]
  - Oedema [Unknown]

NARRATIVE: CASE EVENT DATE: 20170906
